FAERS Safety Report 17109628 (Version 2)
Quarter: 2021Q1

REPORT INFORMATION
  Report Type: Spontaneous
  Country: ES (occurrence: ES)
  Receive Date: 20191204
  Receipt Date: 20210316
  Transmission Date: 20210419
  Serious: Yes (Life-Threatening, Hospitalization, Other)
  Sender: FDA-Public Use
  Company Number: ES-ACCORD-163484

PATIENT
  Age: 62 Year
  Sex: Female

DRUGS (1)
  1. CLOZAPINE. [Suspect]
     Active Substance: CLOZAPINE
     Indication: SCHIZOAFFECTIVE DISORDER
     Dosage: BY THE THIRD WEEK

REACTIONS (6)
  - Cardiac failure [Unknown]
  - Multiple organ dysfunction syndrome [Unknown]
  - Ventricular dysfunction [Unknown]
  - Respiratory failure [Unknown]
  - Cardiogenic shock [Unknown]
  - Myocarditis [Unknown]
